FAERS Safety Report 5822179-7 (Version None)
Quarter: 2008Q3

REPORT INFORMATION
  Report Type: 
  Country: None (occurrence: None)
  Receive Date: 20080725
  Receipt Date: 20080716
  Transmission Date: 20090109
  Serious: Yes (Other)
  Sender: FDA-Public Use
  Company Number: US-BAYER-200828590NA

PATIENT
  Sex: Female

DRUGS (1)
  1. MIRENA [Suspect]
     Indication: DRUG USE FOR UNKNOWN INDICATION
     Route: 015
     Dates: start: 20071129

REACTIONS (10)
  - ABDOMINAL PAIN LOWER [None]
  - ALOPECIA [None]
  - AMENORRHOEA [None]
  - HEADACHE [None]
  - MOOD SWINGS [None]
  - PAIN IN EXTREMITY [None]
  - PYREXIA [None]
  - SALPINGITIS [None]
  - VAGINAL DISCHARGE [None]
  - WEIGHT INCREASED [None]
